FAERS Safety Report 15495024 (Version 1)
Quarter: 2018Q4

REPORT INFORMATION
  Report Type: Spontaneous
  Country: IT (occurrence: IT)
  Receive Date: 20181012
  Receipt Date: 20181012
  Transmission Date: 20190205
  Serious: Yes (Hospitalization, Other)
  Sender: FDA-Public Use
  Company Number: IT-GLAXOSMITHKLINE-IT2016200544

PATIENT
  Age: 83 Year
  Sex: Female

DRUGS (3)
  1. DICLOFENAC [Suspect]
     Active Substance: DICLOFENAC
     Indication: OSTEOARTHRITIS
     Dosage: UNK UNK, QD
     Route: 048
  2. EPREX [Concomitant]
     Active Substance: ERYTHROPOIETIN
     Indication: CHRONIC KIDNEY DISEASE
     Dosage: 2000 IU, UNK
     Route: 058
     Dates: start: 20161106, end: 20161106
  3. ARIMIDEX [Suspect]
     Active Substance: ANASTROZOLE
     Indication: BREAST CANCER
     Dosage: 1 DF, QD
     Route: 048

REACTIONS (5)
  - White blood cell count increased [Unknown]
  - Henoch-Schonlein purpura [Recovering/Resolving]
  - Rash papular [Unknown]
  - C-reactive protein increased [Unknown]
  - Skin necrosis [Unknown]

NARRATIVE: CASE EVENT DATE: 20161110
